FAERS Safety Report 15769923 (Version 1)
Quarter: 2018Q4

REPORT INFORMATION
  Report Type: Spontaneous
  Country: EC (occurrence: EC)
  Receive Date: 20181228
  Receipt Date: 20181228
  Transmission Date: 20190205
  Serious: Yes (Other)
  Sender: FDA-Public Use
  Company Number: EC-ROCHE-2233865

PATIENT
  Sex: Male

DRUGS (2)
  1. MABTHERA [Suspect]
     Active Substance: RITUXIMAB
     Indication: GRANULOMATOSIS WITH POLYANGIITIS
     Route: 042
  2. HYDROCORTISONE. [Concomitant]
     Active Substance: HYDROCORTISONE

REACTIONS (12)
  - Dermatitis allergic [Unknown]
  - Oxygen saturation decreased [Recovered/Resolved]
  - Back pain [Unknown]
  - Face oedema [Unknown]
  - Rash [Recovering/Resolving]
  - Erythema [Recovering/Resolving]
  - Pruritus [Recovering/Resolving]
  - Chills [Unknown]
  - Myalgia [Unknown]
  - Hypotension [Recovered/Resolved]
  - Headache [Unknown]
  - Anaphylactic reaction [Unknown]
